FAERS Safety Report 6431403-1 (Version None)
Quarter: 2009Q4

REPORT INFORMATION
  Report Type: 
  Country: None (occurrence: None)
  Receive Date: 20091106
  Receipt Date: 20091028
  Transmission Date: 20100525
  Serious: Yes (Hospitalization, Other)
  Sender: FDA-Public Use
  Company Number: PHHY2009HK46888

PATIENT
  Age: 1 Year
  Sex: Male

DRUGS (6)
  1. CYCLOSPORINE [Suspect]
     Indication: CORD BLOOD TRANSPLANT THERAPY
  2. CYCLOSPORINE [Suspect]
     Indication: GRAFT VERSUS HOST DISEASE
  3. METHYLPREDNISOLONE 4MG TAB [Suspect]
     Indication: GRAFT VERSUS HOST DISEASE
  4. BUSULPHAN [Concomitant]
     Dosage: 16 MG/KG FOR 4 DAYS
  5. ETOPOSIDE [Concomitant]
     Dosage: 40 MG/KG, UNK
  6. CYCLOPHOSPHAMIDE [Concomitant]
     Dosage: 60 MG/KG FOR 2 DAYS

REACTIONS (11)
  - ABNORMAL BEHAVIOUR [None]
  - AMNESIA [None]
  - BONE MARROW FAILURE [None]
  - DEVELOPMENTAL DELAY [None]
  - ENCEPHALITIS HERPES [None]
  - EPILEPSY [None]
  - GRAFT VERSUS HOST DISEASE [None]
  - HYPERTENSION [None]
  - LYMPHOPENIA [None]
  - PARTIAL SEIZURES [None]
  - PYREXIA [None]
